FAERS Safety Report 9379956 (Version 4)
Quarter: 2013Q3

REPORT INFORMATION
  Report Type: Report from Study
  Country: DE (occurrence: DE)
  Receive Date: 20130702
  Receipt Date: 20130718
  Transmission Date: 20140515
  Serious: Yes (Hospitalization, Other)
  Sender: FDA-Public Use
  Company Number: PHHO2013DE007029

PATIENT
  Age: 60 Year
  Sex: Male
  Weight: 70 kg

DRUGS (8)
  1. GENERIC CICLOSPORIN [Suspect]
     Indication: LIVER TRANSPLANT
     Dosage: 125 MG, BID
     Route: 048
     Dates: start: 20130402, end: 20130417
  2. MYCOPHENOLATE MOFETIL [Suspect]
     Indication: LIVER TRANSPLANT
     Dosage: UNK
     Dates: start: 20130319
  3. PREDNISOLON [Concomitant]
     Indication: IMMUNOSUPPRESSION
     Dates: start: 20130318
  4. RAPAMUNE [Concomitant]
     Indication: IMMUNOSUPPRESSION
     Dosage: UNK
     Dates: start: 20130418, end: 20130513
  5. TORASEMID [Concomitant]
     Indication: PLEURAL EFFUSION
  6. BISOPROLOL [Concomitant]
     Indication: SICK SINUS SYNDROME
     Dosage: UNK
  7. PROGRAF [Concomitant]
     Indication: IMMUNOSUPPRESSION
     Dosage: UNK
     Dates: start: 201306
  8. INSULIN [Concomitant]
     Indication: DIABETES MELLITUS
     Dosage: UNK
     Dates: start: 201306

REACTIONS (5)
  - Haemothorax [Recovered/Resolved]
  - Anastomotic stenosis [Not Recovered/Not Resolved]
  - Transaminases increased [Not Recovered/Not Resolved]
  - Hypovolaemic shock [Recovered/Resolved]
  - Pleural effusion [Not Recovered/Not Resolved]
